FAERS Safety Report 6995877-X (Version None)
Quarter: 2010Q3

REPORT INFORMATION
  Report Type: 
  Country: None (occurrence: None)
  Receive Date: 20100918
  Receipt Date: 20081113
  Transmission Date: 20110219
  Serious: No
  Sender: FDA-Public Use
  Company Number: US-WYE-H06840608

PATIENT
  Sex: Female
  Weight: 20.43 kg

DRUGS (2)
  1. EFFEXOR XR [Suspect]
     Indication: DEPRESSION
     Route: 048
     Dates: start: 20081108
  2. GUANFACINE HYDROCHLORIDE [Concomitant]

REACTIONS (2)
  - RASH VESICULAR [None]
  - URTICARIA [None]
